FAERS Safety Report 5629604-5 (Version None)
Quarter: 2008Q1

REPORT INFORMATION
  Report Type: 
  Country: None (occurrence: None)
  Receive Date: 20080214
  Receipt Date: 20080204
  Transmission Date: 20080703
  Serious: Yes (Death)
  Sender: FDA-Public Use
  Company Number: 2008-01211

PATIENT
  Age: 56 Year
  Sex: Female

DRUGS (10)
  1. METOPROLOL TARTRATE [Suspect]
  2. ALPRAZOLAM [Suspect]
  3. CHLORPHENIRAMINE MALEATE [Suspect]
  4. FIORICET [Suspect]
  5. QUETIAPINE FUMARATE [Suspect]
  6. METAXALONE [Suspect]
  7. VENLAFAXINE HCL [Suspect]
  8. EZETIMIBE / SIMVASTATIN () [Suspect]
  9. FEXOFENADINE HCL [Suspect]
  10. ESTROGENS() [Suspect]

REACTIONS (1)
  - CARDIO-RESPIRATORY ARREST [None]
